FAERS Safety Report 23127238 (Version 2)
Quarter: 2024Q1

REPORT INFORMATION
  Report Type: Report from Study
  Country: US (occurrence: US)
  Receive Date: 20231031
  Receipt Date: 20240131
  Transmission Date: 20240409
  Serious: Yes (Hospitalization)
  Sender: FDA-Public Use
  Company Number: US-ABBVIE-5468535

PATIENT
  Sex: Male
  Weight: 85.275 kg

DRUGS (3)
  1. RINVOQ [Suspect]
     Active Substance: UPADACITINIB
     Indication: Colitis ulcerative
     Route: 048
     Dates: start: 20221130
  2. LASAL [Concomitant]
     Indication: Product used for unknown indication
  3. HYDRALAZINE [Concomitant]
     Active Substance: HYDRALAZINE HYDROCHLORIDE
     Indication: Blood pressure measurement

REACTIONS (10)
  - Fluid retention [Not Recovered/Not Resolved]
  - Musculoskeletal disorder [Unknown]
  - Hot flush [Unknown]
  - Dyspnoea [Unknown]
  - Hypertension [Unknown]
  - Lethargy [Unknown]
  - Heart rate increased [Unknown]
  - Weight decreased [Unknown]
  - Pericardial effusion [Not Recovered/Not Resolved]
  - Cardiac disorder [Unknown]

NARRATIVE: CASE EVENT DATE: 20230101
